FAERS Safety Report 5829737-4 (Version None)
Quarter: 2008Q3

REPORT INFORMATION
  Report Type: 
  Country: None (occurrence: None)
  Receive Date: 20080801
  Receipt Date: 20080731
  Transmission Date: 20090109
  Serious: Yes (Other)
  Sender: FDA-Public Use
  Company Number: US-BRISTOL-MYERS SQUIBB COMPANY-14243810

PATIENT
  Age: 62 Year
  Sex: Male

DRUGS (4)
  1. ERBITUX [Suspect]
     Indication: HEAD AND NECK CANCER
     Dosage: RECEIVED IN FEB08-MAR08.7DAYS AFTER 1ST AND 2ND INFUSIONS
     Route: 042
     Dates: start: 20070101
  2. CISPLATIN [Suspect]
     Indication: HEAD AND NECK CANCER
     Route: 042
     Dates: start: 20070101
  3. SYNTHROID [Concomitant]
  4. AMIODARONE [Concomitant]

REACTIONS (1)
  - VENTRICULAR TACHYCARDIA [None]
